FAERS Safety Report 11784063 (Version 1)
Quarter: 2015Q4

REPORT INFORMATION
  Report Type: Spontaneous
  Country: US (occurrence: US)
  Receive Date: 20151128
  Receipt Date: 20151128
  Transmission Date: 20160305
  Serious: No
  Sender: FDA-Public Use
  Company Number: US-NOVEN PHARMACEUTICALS, INC.-US2015000938

PATIENT
  Age: 56 Year
  Sex: Female

DRUGS (3)
  1. MINIVELLE [Suspect]
     Active Substance: ESTRADIOL
     Indication: OOPHORECTOMY
     Dosage: 0.1 MG, UNK
     Route: 062
     Dates: start: 2013
  2. PINDOLOL. [Concomitant]
     Active Substance: PINDOLOL
     Indication: SYNCOPE
  3. MINIVELLE [Suspect]
     Active Substance: ESTRADIOL
     Dosage: 0.1 MG, UNKNOWN
     Route: 062
     Dates: end: 201510

REACTIONS (4)
  - Hot flush [Unknown]
  - Wrong technique in product usage process [Unknown]
  - Product adhesion issue [Unknown]
  - Drug dose omission [Not Recovered/Not Resolved]

NARRATIVE: CASE EVENT DATE: 20150805
